FAERS Safety Report 9319114 (Version 1)
Quarter: 2013Q2

REPORT INFORMATION
  Report Type: Spontaneous
  Country: US (occurrence: US)
  Receive Date: 20130530
  Receipt Date: 20130530
  Transmission Date: 20140414
  Serious: No
  Sender: FDA-Public Use
  Company Number: US-009507513-1304USA002822

PATIENT
  Age: 72 Year
  Sex: Male
  Weight: 81.63 kg

DRUGS (5)
  1. MIRALAX [Suspect]
     Indication: CONSTIPATION PROPHYLAXIS
     Dosage: 17 G, BID
     Route: 048
     Dates: start: 201208, end: 20130319
  2. MIRALAX [Suspect]
     Indication: MEDICAL OBSERVATION
  3. PLAVIX [Concomitant]
     Indication: CARDIAC DISORDER
  4. METOPROLOL [Concomitant]
     Indication: CARDIAC DISORDER
  5. ASPIRIN [Concomitant]
     Indication: CARDIAC DISORDER

REACTIONS (2)
  - Dysgeusia [Not Recovered/Not Resolved]
  - Incorrect drug administration duration [Unknown]
